FAERS Safety Report 11422762 (Version 1)
Quarter: 2015Q3

REPORT INFORMATION
  Report Type: Spontaneous
  Country: US (occurrence: None)
  Receive Date: 20150826
  Receipt Date: 20150826
  Transmission Date: 20151125
  Serious: Yes (Hospitalization)
  Sender: FDA-Public Use
  Company Number: None

PATIENT
  Age: 88 Year
  Sex: Male
  Weight: 100 kg

DRUGS (1)
  1. LEUPROLIDE [Suspect]
     Active Substance: LEUPROLIDE
     Indication: PROSTATE CANCER
     Dates: start: 20130513, end: 20141024

REACTIONS (12)
  - Hot flush [None]
  - Diarrhoea [None]
  - Dyspnoea [None]
  - Anhedonia [None]
  - Vomiting [None]
  - Weight decreased [None]
  - Haematuria [None]
  - Nausea [None]
  - Fatigue [None]
  - Dysuria [None]
  - Incontinence [None]
  - Polyuria [None]

NARRATIVE: CASE EVENT DATE: 20141024
